FAERS Safety Report 20377975 (Version 1)
Quarter: 2022Q1

REPORT INFORMATION
  Report Type: Spontaneous
  Country: US (occurrence: US)
  Receive Date: 20220126
  Receipt Date: 20220126
  Transmission Date: 20220423
  Serious: No
  Sender: FDA-Public Use
  Company Number: US-ALLERGAN-2136524US

PATIENT
  Sex: Female

DRUGS (2)
  1. UBRELVY [Suspect]
     Active Substance: UBROGEPANT
     Indication: Migraine
     Dosage: ONE DOSE OF 100 MG
  2. IBUPROFEN [Concomitant]
     Active Substance: IBUPROFEN
     Indication: Migraine

REACTIONS (1)
  - Heart rate decreased [Recovered/Resolved]
